FAERS Safety Report 23330635 (Version 1)
Quarter: 2023Q4

REPORT INFORMATION
  Report Type: Spontaneous
  Country: CH (occurrence: CH)
  Receive Date: 20231222
  Receipt Date: 20231222
  Transmission Date: 20240110
  Serious: Yes (Life-Threatening, Other)
  Sender: FDA-Public Use
  Company Number: CH-MYLANLABS-2023M1135349

PATIENT
  Sex: Female

DRUGS (1)
  1. VENLAFAXINE HYDROCHLORIDE [Suspect]
     Active Substance: VENLAFAXINE HYDROCHLORIDE
     Indication: Migraine
     Dosage: UNK
     Route: 065

REACTIONS (10)
  - Suicidal ideation [Recovered/Resolved]
  - Drug dependence [Recovered/Resolved]
  - Migraine [Recovered/Resolved]
  - Bedridden [Recovered/Resolved]
  - Withdrawal syndrome [Recovered/Resolved]
  - Dizziness [Recovered/Resolved]
  - Generalised oedema [Unknown]
  - Malaise [Unknown]
  - Intentional product use issue [Unknown]
  - Off label use [Unknown]
